FAERS Safety Report 9216099 (Version 3)
Quarter: 2013Q3

REPORT INFORMATION
  Report Type: Spontaneous
  Country: DE (occurrence: DE)
  Receive Date: 20130408
  Receipt Date: 20130725
  Transmission Date: 20140515
  Serious: Yes (Death, Hospitalization, Other)
  Sender: FDA-Public Use
  Company Number: DE-AMGEN-DEUSP2013024149

PATIENT
  Age: 60 Year
  Sex: Female
  Weight: 66.7 kg

DRUGS (8)
  1. ENBREL [Suspect]
     Indication: PRODUCT USED FOR UNKNOWN INDICATION
     Dosage: UNK
     Route: 058
     Dates: start: 20121109
  2. PREDNISOLON                        /00016201/ [Concomitant]
     Dosage: 5 MG, 1X/DAY IN THE MORNING
  3. L-THYROXIN [Concomitant]
     Dosage: 125 UG, ALTERNATE DAY, IN EXCHANGE WITH 150 MUG
  4. L-THYROXIN [Concomitant]
     Dosage: 150 UG, ALTERNATE DAY, IN EXCHANGE WITH 125 MUG
  5. ARCOXIA [Concomitant]
     Dosage: 90 MG, AS NEEDED 1X7DAY
  6. CLINDAMYCIN [Concomitant]
     Dosage: 300 MG, 3X/DAY
  7. PANTOPRAZOL [Concomitant]
     Dosage: 20 MG, AS NEEDED 1X/DAY
  8. DEKRISTOL [Concomitant]
     Dosage: 20000 IU, EVERY 2 WEEKS

REACTIONS (16)
  - Renal failure acute [Fatal]
  - Respiratory failure [Fatal]
  - Systemic lupus erythematosus [Unknown]
  - Diastolic dysfunction [Unknown]
  - Hypothyroidism [Unknown]
  - Condition aggravated [Unknown]
  - Weight decreased [Unknown]
  - Nocturia [Unknown]
  - Poor quality sleep [Unknown]
  - Dry mouth [Unknown]
  - Septic shock [Fatal]
  - Histiocytosis haematophagic [Unknown]
  - Bronchopulmonary aspergillosis [Unknown]
  - Pneumonia streptococcal [Unknown]
  - Respiratory tract infection [Unknown]
  - Ear infection bacterial [Unknown]
